FAERS Safety Report 17686591 (Version 2)
Quarter: 2020Q2

REPORT INFORMATION
  Report Type: Spontaneous
  Country: US (occurrence: US)
  Receive Date: 20200420
  Receipt Date: 20200501
  Transmission Date: 20200714
  Serious: Yes (Hospitalization, Other)
  Sender: FDA-Public Use
  Company Number: US-AUROBINDO-AUR-APL-2020-018839

PATIENT
  Age: 21 Year
  Sex: Female

DRUGS (2)
  1. BUPIVACAINE HYDROCHLORIDE 0.25% (2.5 MG/ML) [Suspect]
     Active Substance: BUPIVACAINE HYDROCHLORIDE
     Indication: PRODUCT USED FOR UNKNOWN INDICATION
     Dosage: UNK
     Route: 042
     Dates: start: 2016, end: 2016
  2. FENTANYL. [Suspect]
     Active Substance: FENTANYL
     Indication: PRODUCT USED FOR UNKNOWN INDICATION
     Dosage: UNK,1 TOTAL
     Route: 042
     Dates: start: 2016, end: 2016

REACTIONS (10)
  - Hypotension [Recovering/Resolving]
  - Tachycardia [Recovering/Resolving]
  - Wrong product administered [Recovering/Resolving]
  - Tinnitus [Recovering/Resolving]
  - Respiratory arrest [Recovering/Resolving]
  - Stupor [Recovering/Resolving]
  - Hypoaesthesia oral [Recovering/Resolving]
  - Maternal exposure during pregnancy [Recovered/Resolved]
  - Seizure [Recovering/Resolving]
  - Incorrect route of product administration [Recovering/Resolving]

NARRATIVE: CASE EVENT DATE: 2016
